FAERS Safety Report 8308856-7 (Version None)
Quarter: 2012Q2

REPORT INFORMATION
  Report Type: 
  Country: None (occurrence: None)
  Receive Date: 20120424
  Receipt Date: 20120419
  Transmission Date: 20120825
  Serious: Yes (Other)
  Sender: FDA-Public Use
  Company Number: US-PFIZER INC-2012097772

PATIENT
  Sex: Female

DRUGS (2)
  1. EFFEXOR [Suspect]
     Dosage: UNK
  2. EFFEXOR XR [Suspect]
     Dosage: 75 MG, UNK

REACTIONS (2)
  - CLUSTER HEADACHE [None]
  - SEROTONIN SYNDROME [None]
